FAERS Safety Report 9266248 (Version 5)
Quarter: 2017Q1

REPORT INFORMATION
  Report Type: Spontaneous
  Country: FI (occurrence: FI)
  Receive Date: 20130502
  Receipt Date: 20170316
  Transmission Date: 20170429
  Serious: Yes (Death, Hospitalization)
  Sender: FDA-Public Use
  Company Number: FI-ROCHE-1218445

PATIENT
  Age: 82 Year
  Sex: Male

DRUGS (18)
  1. DOXORUBICIN [Suspect]
     Active Substance: DOXORUBICIN
     Indication: B-CELL LYMPHOMA
     Route: 042
     Dates: start: 200406, end: 200410
  2. MESNA. [Suspect]
     Active Substance: MESNA
     Indication: B-CELL LYMPHOMA
     Route: 042
     Dates: start: 200710, end: 200802
  3. NOVANTRONE [Suspect]
     Active Substance: MITOXANTRONE HYDROCHLORIDE
     Indication: B-CELL LYMPHOMA
     Route: 042
     Dates: start: 200710, end: 200802
  4. MABTHERA [Suspect]
     Active Substance: RITUXIMAB
     Dosage: MAINTENANCE THERAPY
     Route: 042
     Dates: start: 200802, end: 201003
  5. LEUKERAN [Suspect]
     Active Substance: CHLORAMBUCIL
     Indication: B-CELL LYMPHOMA
     Route: 048
     Dates: start: 200212, end: 200403
  6. ETOPOSIDE. [Suspect]
     Active Substance: ETOPOSIDE
     Indication: B-CELL LYMPHOMA
     Route: 042
     Dates: start: 200710, end: 200802
  7. MABTHERA [Suspect]
     Active Substance: RITUXIMAB
     Indication: B-CELL LYMPHOMA
     Dosage: 6 CYCLES
     Route: 042
     Dates: start: 200406, end: 200410
  8. PREDNISONE. [Suspect]
     Active Substance: PREDNISONE
     Indication: B-CELL LYMPHOMA
     Route: 042
     Dates: start: 200406, end: 200410
  9. KLEXANE [Concomitant]
     Active Substance: ENOXAPARIN
     Route: 058
  10. CYCLOPHOSPHAMIDE. [Suspect]
     Active Substance: CYCLOPHOSPHAMIDE
     Indication: B-CELL LYMPHOMA
     Route: 042
     Dates: start: 200406, end: 200410
  11. KALCIPOS-D [Concomitant]
     Active Substance: CALCIUM CARBONATE\CHOLECALCIFEROL
     Route: 048
  12. CARDACE (FINLAND) [Concomitant]
     Route: 048
  13. ORMOX [Concomitant]
     Route: 048
  14. MABTHERA [Suspect]
     Active Substance: RITUXIMAB
     Dosage: 6 CYCLES WITH MINE
     Route: 042
     Dates: start: 200710, end: 200802
  15. LEVACT (FINLAND) [Suspect]
     Active Substance: BENDAMUSTINE HYDROCHLORIDE
     Indication: B-CELL LYMPHOMA
     Route: 042
     Dates: start: 201203, end: 201208
  16. VINCRISTINE [Suspect]
     Active Substance: VINCRISTINE
     Indication: B-CELL LYMPHOMA
     Route: 042
     Dates: start: 200406, end: 200410
  17. IFOSFAMIDE. [Suspect]
     Active Substance: IFOSFAMIDE
     Indication: B-CELL LYMPHOMA
     Route: 042
     Dates: start: 200710, end: 200802
  18. MABTHERA [Suspect]
     Active Substance: RITUXIMAB
     Dosage: TOTALLY 30 CYCLES
     Route: 042
     Dates: start: 201203, end: 201208

REACTIONS (1)
  - Progressive multifocal leukoencephalopathy [Fatal]

NARRATIVE: CASE EVENT DATE: 20130313
